FAERS Safety Report 4497696-5 (Version None)
Quarter: 2004Q4

REPORT INFORMATION
  Report Type: 
  Country: None (occurrence: None)
  Receive Date: 20041108
  Receipt Date: 20041028
  Transmission Date: 20050328
  Serious: Yes (Hospitalization, Other)
  Sender: FDA-Public Use
  Company Number: US-JNJFOC-20041100035

PATIENT
  Age: 51 Year
  Sex: Female

DRUGS (2)
  1. HALDOL DECANOATE [Suspect]
  2. HALDOL DECANOATE [Suspect]
     Indication: SCHIZOPHRENIA
     Dosage: 150 - 300 MG

REACTIONS (4)
  - ARTHRITIS [None]
  - DIABETES MELLITUS [None]
  - HYPERTENSION [None]
  - VISION BLURRED [None]
